FAERS Safety Report 18237002 (Version 3)
Quarter: 2020Q3

REPORT INFORMATION
  Report Type: Report from Study
  Country: FR (occurrence: FR)
  Receive Date: 20200907
  Receipt Date: 20200928
  Transmission Date: 20201103
  Serious: Yes (Hospitalization)
  Sender: FDA-Public Use
  Company Number: FR-WORLDWIDE CLINICAL TRIALS-2020-FR-000418

PATIENT
  Age: 65 Year
  Sex: Male
  Weight: 80 kg

DRUGS (8)
  1. ALOE VERA [Concomitant]
     Active Substance: ALOE VERA LEAF
     Indication: PALMOPLANTAR KERATODERMA
     Dosage: 1APPLICATION, QD
     Route: 062
     Dates: start: 202005
  2. BARIEDERM [Concomitant]
     Indication: PALMAR-PLANTAR ERYTHRODYSAESTHESIA SYNDROME
     Dosage: UNK, SINGLE
     Route: 062
     Dates: start: 202004
  3. DOLIPRANE [Concomitant]
     Active Substance: ACETAMINOPHEN
     Indication: TUMOUR PAIN
     Dosage: 1 GRAM, PRN
     Route: 048
     Dates: start: 202003
  4. KETODERM [KETOCONAZOLE] [Concomitant]
     Indication: PALMOPLANTAR KERATODERMA
     Dosage: 1 APPLICATION, QD
     Route: 062
     Dates: start: 20200519
  5. XERIAL [Concomitant]
     Indication: PALMOPLANTAR KERATODERMA
     Dosage: 1 APPLICATION, QD
     Route: 062
     Dates: start: 20190609
  6. DERMOVAL [BETAMETHASONE VALERATE] [Concomitant]
     Indication: PALMOPLANTAR KERATODERMA
     Dosage: 1 APPLICATION, QD
     Route: 062
     Dates: start: 202007
  7. DCC?2618 [Suspect]
     Active Substance: RIPRETINIB
     Indication: GASTROINTESTINAL STROMAL TUMOUR
     Dosage: 150 MILLIGRAM, QD
     Route: 048
     Dates: start: 20200317, end: 20200821
  8. CIALIS [Concomitant]
     Active Substance: TADALAFIL
     Indication: ERECTILE DYSFUNCTION
     Dosage: 10 MILLIGRAM, PRN
     Route: 048
     Dates: start: 202007

REACTIONS (1)
  - Diverticulitis [Recovered/Resolved]

NARRATIVE: CASE EVENT DATE: 20200821
